FAERS Safety Report 8876892 (Version 2)
Quarter: 2012Q4

REPORT INFORMATION
  Report Type: 
  Country: US (occurrence: US)
  Receive Date: 20121029
  Receipt Date: 20121105
  Transmission Date: 20130627
  Serious: Yes (Hospitalization)
  Sender: FDA-Public Use
  Company Number: US-PFIZER INC-2012260979

PATIENT
  Age: 17 Year
  Sex: Male
  Weight: 63.49 kg

DRUGS (2)
  1. DESVENLAFAXINE SUCCINATE MONOHYDRATE [Suspect]
     Indication: MAJOR DEPRESSION
     Dosage: 25 mg, 1x/day
     Route: 048
     Dates: start: 20120615, end: 20121017
  2. OXYCONTIN [Suspect]
     Dosage: 10 mg pill, taken one time (single)
     Route: 048
     Dates: start: 20121017, end: 20121017

REACTIONS (3)
  - Aggression [Recovered/Resolved]
  - Suicide attempt [Recovered/Resolved]
  - Agitation [Recovered/Resolved]
